FAERS Safety Report 25185213 (Version 1)
Quarter: 2025Q2

REPORT INFORMATION
  Report Type: Other
  Country: NO (occurrence: NO)
  Receive Date: 20250410
  Receipt Date: 20250410
  Transmission Date: 20250717
  Serious: Yes (Life-Threatening, Other)
  Sender: Atnahs Healthcare
  Company Number: None

PATIENT
  Age: 48 Year
  Sex: Male
  Weight: 90 kg

DRUGS (1)
  1. DIAZEPAM [Suspect]
     Active Substance: DIAZEPAM
     Indication: Withdrawal syndrome
     Route: 065
     Dates: start: 20250213, end: 20250221

REACTIONS (25)
  - Suicidal ideation [Recovering/Resolving]
  - Psychotic disorder [Recovering/Resolving]
  - Diabetes mellitus [Not Recovered/Not Resolved]
  - Psychotic disorder [Recovered/Resolved]
  - Amnesia [Recovering/Resolving]
  - Sensory disturbance [Recovering/Resolving]
  - Cognitive disorder [Recovering/Resolving]
  - Confusional state [Recovering/Resolving]
  - Fear [Recovering/Resolving]
  - Disorientation [Recovering/Resolving]
  - Disturbance in attention [Recovering/Resolving]
  - Behaviour disorder [Recovering/Resolving]
  - Affect lability [Recovering/Resolving]
  - Withdrawal syndrome [Not Recovered/Not Resolved]
  - Condition aggravated [Not Recovered/Not Resolved]
  - General physical health deterioration [Not Recovered/Not Resolved]
  - Mental disorder [Not Recovered/Not Resolved]
  - Cardiovascular disorder [Not Recovered/Not Resolved]
  - Economic problem [Not Recovered/Not Resolved]
  - Personality disorder [Not Recovered/Not Resolved]
  - Paranoia [Not Recovered/Not Resolved]
  - Depression [Recovering/Resolving]
  - Mania [Recovering/Resolving]
  - Paranoid personality disorder [Recovering/Resolving]
  - Social problem [Not Recovered/Not Resolved]

NARRATIVE: CASE EVENT DATE: 20250213
